FAERS Safety Report 23539654 (Version 3)
Quarter: 2025Q3

REPORT INFORMATION
  Report Type: Spontaneous
  Country: EU (occurrence: EU)
  Receive Date: 20240219
  Receipt Date: 20250731
  Transmission Date: 20251020
  Serious: Yes (Other)
  Sender: MYLAN
  Company Number: EU-002147023-NVSC2024BE025351

PATIENT
  Age: 57 Year
  Sex: Male

DRUGS (20)
  1. IMATINIB [Suspect]
     Active Substance: IMATINIB
     Indication: Gastrointestinal stromal tumour
  2. IMATINIB [Suspect]
     Active Substance: IMATINIB
     Route: 065
  3. IMATINIB [Suspect]
     Active Substance: IMATINIB
     Route: 065
  4. IMATINIB [Suspect]
     Active Substance: IMATINIB
  5. SUNITINIB [Suspect]
     Active Substance: SUNITINIB
     Indication: Gastrointestinal stromal tumour
  6. SUNITINIB [Suspect]
     Active Substance: SUNITINIB
     Route: 065
  7. SUNITINIB [Suspect]
     Active Substance: SUNITINIB
     Route: 065
  8. SUNITINIB [Suspect]
     Active Substance: SUNITINIB
  9. CABOMETYX [Suspect]
     Active Substance: CABOZANTINIB S-MALATE
     Indication: Gastrointestinal stromal tumour
  10. CABOMETYX [Suspect]
     Active Substance: CABOZANTINIB S-MALATE
     Route: 065
  11. CABOMETYX [Suspect]
     Active Substance: CABOZANTINIB S-MALATE
     Route: 065
  12. CABOMETYX [Suspect]
     Active Substance: CABOZANTINIB S-MALATE
  13. STIVARGA [Suspect]
     Active Substance: REGORAFENIB MONOHYDRATE
     Indication: Gastrointestinal stromal tumour
  14. STIVARGA [Suspect]
     Active Substance: REGORAFENIB MONOHYDRATE
     Route: 065
  15. STIVARGA [Suspect]
     Active Substance: REGORAFENIB MONOHYDRATE
     Route: 065
  16. STIVARGA [Suspect]
     Active Substance: REGORAFENIB MONOHYDRATE
  17. REGORAFENIB [Suspect]
     Active Substance: REGORAFENIB
     Indication: Gastrointestinal stromal tumour
  18. REGORAFENIB [Suspect]
     Active Substance: REGORAFENIB
     Route: 065
  19. REGORAFENIB [Suspect]
     Active Substance: REGORAFENIB
     Route: 065
  20. REGORAFENIB [Suspect]
     Active Substance: REGORAFENIB

REACTIONS (2)
  - Malignant neoplasm progression [Unknown]
  - Gastrointestinal stromal tumour [Unknown]
